FAERS Safety Report 7604632-9 (Version None)
Quarter: 2011Q3

REPORT INFORMATION
  Report Type: 
  Country: None (occurrence: None)
  Receive Date: 20110712
  Receipt Date: 20110707
  Transmission Date: 20111222
  Serious: Yes (Hospitalization)
  Sender: FDA-Public Use
  Company Number: DE-ABBOTT-11P-062-0837232-00

PATIENT
  Age: 68 Year
  Sex: Female
  Weight: 69 kg

DRUGS (5)
  1. METHOTREXATE [Concomitant]
     Indication: PRODUCT USED FOR UNKNOWN INDICATION
     Dosage: WEEKLY DOSE: 10MG
  2. HUMIRA [Suspect]
     Indication: RHEUMATOID ARTHRITIS
     Dosage: 40MG, EVERY 10 DAYS
     Dates: start: 20080801, end: 20110320
  3. UNKNOWN MEDICATION [Concomitant]
     Indication: OSTEOPOROSIS
  4. HUMIRA [Suspect]
     Indication: DRUG INTOLERANCE
     Dates: start: 20110405
  5. CLONIDINE [Concomitant]
     Indication: HYPERTENSION

REACTIONS (5)
  - LIPOMA [None]
  - FOOT OPERATION [None]
  - INGUINAL HERNIA [None]
  - MUSCLE RUPTURE [None]
  - FRACTURE [None]
